FAERS Safety Report 7708533-7 (Version None)
Quarter: 2011Q3

REPORT INFORMATION
  Report Type: 
  Country: None (occurrence: None)
  Receive Date: 20110825
  Receipt Date: 20110816
  Transmission Date: 20111222
  Serious: Yes (Hospitalization)
  Sender: FDA-Public Use
  Company Number: FR-ASTELLAS-2011EU004529

PATIENT
  Age: 56 Year
  Sex: Male
  Weight: 56 kg

DRUGS (11)
  1. AMLODIPINE BESYLATE [Concomitant]
     Dosage: 10 MG, UID/QD
     Route: 048
  2. PRAVASTATIN [Concomitant]
     Dosage: 40 MG, UNKNOWN/D
     Route: 048
  3. CELLCEPT [Concomitant]
     Dosage: 2 DF, BID
     Route: 048
  4. TACROLIMUS [Suspect]
     Indication: PROPHYLAXIS AGAINST TRANSPLANT REJECTION
     Dosage: 3 MG, UID/QD
     Route: 048
     Dates: start: 20091101, end: 20110706
  5. SECTRAL [Concomitant]
     Dosage: 200 MG, UID/QD
     Route: 048
  6. TACROLIMUS [Interacting]
     Dosage: 3 MG, BID
     Route: 048
     Dates: start: 20110712
  7. NORVIR [Interacting]
     Indication: HIV INFECTION
     Dosage: 100 MG, UNKNOWN/D
     Route: 048
     Dates: start: 20110607, end: 20110706
  8. ABACAVIR SULFATE AND LAMIVUDINE [Concomitant]
     Indication: HIV INFECTION
     Dosage: 100 MG, UID/QD
     Route: 048
     Dates: start: 20110607
  9. ASPIRIN [Concomitant]
     Dosage: 160 MG, UID/QD
     Route: 048
  10. RAMIPRIL [Concomitant]
     Dosage: 1 DF, BID
     Route: 048
  11. REYATAZ [Interacting]
     Indication: HIV INFECTION
     Dosage: 300 MG, UID/QD
     Route: 048
     Dates: start: 20110607, end: 20110706

REACTIONS (7)
  - OVERDOSE [None]
  - DRUG LEVEL INCREASED [None]
  - MUSCULAR WEAKNESS [None]
  - GASTROINTESTINAL DISORDER [None]
  - HEADACHE [None]
  - WEIGHT DECREASED [None]
  - DRUG INTERACTION [None]
